FAERS Safety Report 6845122-0 (Version None)
Quarter: 2010Q3

REPORT INFORMATION
  Report Type: 
  Country: None (occurrence: None)
  Receive Date: 20100715
  Receipt Date: 20070812
  Transmission Date: 20110219
  Serious: No
  Sender: FDA-Public Use
  Company Number: US-PFIZER INC-2007068444

PATIENT
  Sex: Female
  Weight: 61.363 kg

DRUGS (6)
  1. CHANTIX [Suspect]
     Indication: SMOKING CESSATION THERAPY
     Dates: start: 20070808
  2. WELLBUTRIN [Interacting]
     Indication: DEPRESSION
  3. NEXIUM [Concomitant]
     Indication: GASTROOESOPHAGEAL REFLUX DISEASE
  4. KLONOPIN [Concomitant]
     Indication: DEPRESSION
  5. TYPHOID VACCINE [Concomitant]
     Route: 030
     Dates: start: 20070803
  6. HEPATITIS A VACCINE [Concomitant]
     Route: 030
     Dates: start: 20070803

REACTIONS (2)
  - DRUG INTERACTION [None]
  - MYALGIA [None]
